FAERS Safety Report 11537892 (Version 1)
Quarter: 2015Q3

REPORT INFORMATION
  Report Type: Other
  Country: AU (occurrence: AU)
  Receive Date: 20150922
  Receipt Date: 20150922
  Transmission Date: 20151125
  Serious: Yes (Life-Threatening)
  Sender: FDA-Public Use
  Company Number: AU-COR_00395_2015

PATIENT
  Age: 24 Month
  Sex: Male

DRUGS (5)
  1. CYCLOPHOSPHAMIDE. [Suspect]
     Active Substance: CYCLOPHOSPHAMIDE
     Indication: METASTASES TO EYE
     Dosage: DF
  2. ETOPOSIDE. [Suspect]
     Active Substance: ETOPOSIDE
     Indication: METASTASES TO EYE
     Dosage: DF
  3. RADIOTHERAPY [Suspect]
     Active Substance: RADIATION THERAPY
     Indication: METASTASES TO EYE
     Dosage: 5 WEEKS
  4. VINCRISTINE [Suspect]
     Active Substance: VINCRISTINE
     Indication: METASTASES TO EYE
     Dosage: DF
  5. CISPLATIN. [Suspect]
     Active Substance: CISPLATIN
     Indication: METASTASES TO EYE
     Dosage: DF

REACTIONS (1)
  - Pancytopenia [Unknown]
